FAERS Safety Report 10502640 (Version 3)
Quarter: 2014Q4

REPORT INFORMATION
  Report Type: Spontaneous
  Country: JP (occurrence: JP)
  Receive Date: 20141007
  Receipt Date: 20141215
  Transmission Date: 20150528
  Serious: Yes (Hospitalization, Disabling, Other)
  Sender: FDA-Public Use
  Company Number: JP-ASTRAZENECA-2014SE50095

PATIENT
  Age: 69 Year
  Sex: Male
  Weight: 84 kg

DRUGS (4)
  1. URSO [Suspect]
     Active Substance: URSODIOL
     Indication: CIRRHOSIS ALCOHOLIC
     Route: 048
     Dates: start: 20140219, end: 20140613
  2. NEXIUM [Suspect]
     Active Substance: ESOMEPRAZOLE MAGNESIUM
     Indication: GASTROOESOPHAGEAL REFLUX DISEASE
     Route: 048
     Dates: start: 20140516, end: 20140612
  3. LIVACT [Suspect]
     Active Substance: AMINO ACIDS
     Indication: CIRRHOSIS ALCOHOLIC
     Route: 048
     Dates: start: 20140326, end: 20140414
  4. LIVACT [Suspect]
     Active Substance: AMINO ACIDS
     Indication: CIRRHOSIS ALCOHOLIC
     Route: 048
     Dates: start: 20140415, end: 20140613

REACTIONS (3)
  - Dyspnoea [Unknown]
  - Hypoxia [Unknown]
  - Erythema multiforme [Recovering/Resolving]

NARRATIVE: CASE EVENT DATE: 20140520
